FAERS Safety Report 14640836 (Version 1)
Quarter: 2018Q1

REPORT INFORMATION
  Report Type: Spontaneous
  Country: US (occurrence: US)
  Receive Date: 20180314
  Receipt Date: 20180314
  Transmission Date: 20180509
  Serious: Yes (Disabling)
  Sender: FDA-Public Use
  Company Number: None

PATIENT
  Age: 44 Year
  Sex: Male
  Weight: 78.75 kg

DRUGS (4)
  1. LAMOTROGINE [Suspect]
     Active Substance: LAMOTRIGINE
  2. VALTREX [Concomitant]
     Active Substance: VALACYCLOVIR HYDROCHLORIDE
  3. LARIAM [Suspect]
     Active Substance: MEFLOQUINE HYDROCHLORIDE
     Indication: MALARIA PROPHYLAXIS
     Route: 048
     Dates: start: 19930301, end: 19930601
  4. PREP [Concomitant]

REACTIONS (2)
  - Toxicity to various agents [None]
  - Vestibular disorder [None]

NARRATIVE: CASE EVENT DATE: 20180101
